FAERS Safety Report 4582452-X (Version None)
Quarter: 2005Q1

REPORT INFORMATION
  Report Type: 
  Country: None (occurrence: None)
  Receive Date: 20050211
  Receipt Date: 20050211
  Transmission Date: 20050727
  Serious: Yes (Hospitalization)
  Sender: FDA-Public Use
  Company Number: None

PATIENT
  Age: 86 Year
  Sex: Female
  Weight: 63 kg

DRUGS (12)
  1. CELEBREX [Suspect]
     Indication: CHEST PAIN
     Dosage: 200MG DAILY   ORAL
     Route: 048
  2. CELEBREX [Suspect]
     Indication: SPINAL OSTEOARTHRITIS
     Dosage: 200MG DAILY   ORAL
     Route: 048
  3. VICOPROFEN [Suspect]
     Indication: CHEST PAIN
     Dosage: 1-2 TABLET   PRN   ORAL
     Route: 048
  4. VICOPROFEN [Suspect]
     Indication: SPINAL OSTEOARTHRITIS
     Dosage: 1-2 TABLET   PRN   ORAL
     Route: 048
  5. PREDNISONE [Concomitant]
  6. DIPYRIDAMOLE [Concomitant]
  7. VERAPAMIL [Concomitant]
  8. ASPIRIN [Concomitant]
  9. QUINAPRIL [Concomitant]
  10. FLUTICASONE INHALER [Concomitant]
  11. ACETAMINOPHEN [Concomitant]
  12. DOXYCYCLINE [Concomitant]

REACTIONS (9)
  - ANAEMIA [None]
  - ASTHENIA [None]
  - ASTHMA [None]
  - CONDITION AGGRAVATED [None]
  - DUODENAL ULCER [None]
  - DYSPNOEA [None]
  - FATIGUE [None]
  - GASTROINTESTINAL HAEMORRHAGE [None]
  - PNEUMONIA [None]
